FAERS Safety Report 19576102 (Version 1)
Quarter: 2021Q3

REPORT INFORMATION
  Report Type: Spontaneous
  Country: US (occurrence: US)
  Receive Date: 20210718
  Receipt Date: 20210718
  Transmission Date: 20211014
  Serious: No
  Sender: FDA-Public Use
  Company Number: None

PATIENT
  Age: 45 Year
  Sex: Female
  Weight: 85.95 kg

DRUGS (15)
  1. PERCOCET [Concomitant]
     Active Substance: ACETAMINOPHEN\OXYCODONE HYDROCHLORIDE
  2. BACLOFEN. [Concomitant]
     Active Substance: BACLOFEN
  3. FLEXERIL [Concomitant]
     Active Substance: CYCLOBENZAPRINE HYDROCHLORIDE
  4. ADVAIRE [Concomitant]
  5. METFORMIN [Concomitant]
     Active Substance: METFORMIN HYDROCHLORIDE
  6. VITAMIN B [Concomitant]
     Active Substance: VITAMIN B
  7. FENOFIBRATE. [Concomitant]
     Active Substance: FENOFIBRATE
  8. BIOTIN [Concomitant]
     Active Substance: BIOTIN
  9. LYRICA [Concomitant]
     Active Substance: PREGABALIN
  10. COLLAGEN [Concomitant]
     Active Substance: COLLAGEN
  11. LISINOPRIL. [Concomitant]
     Active Substance: LISINOPRIL
  12. LIDOCAINE PATCH [Concomitant]
     Active Substance: LIDOCAINE
  13. TRULICITY [Suspect]
     Active Substance: DULAGLUTIDE
  14. LANTUS [Concomitant]
     Active Substance: INSULIN GLARGINE
  15. VITAMIN D [Concomitant]
     Active Substance: VITAMIN D NOS

REACTIONS (3)
  - Alopecia [None]
  - Blood glucose increased [None]
  - Nausea [None]

NARRATIVE: CASE EVENT DATE: 20210718
